FAERS Safety Report 8582033-7 (Version None)
Quarter: 2012Q3

REPORT INFORMATION
  Report Type: 
  Country: None (occurrence: None)
  Receive Date: 20120809
  Receipt Date: 20120806
  Transmission Date: 20120928
  Serious: Yes (Other)
  Sender: FDA-Public Use
  Company Number: US-PFIZER INC-2012096905

PATIENT
  Age: 54 Year
  Sex: Female

DRUGS (1)
  1. CHANTIX [Suspect]
     Dosage: 1 MG, 2X/DAY
     Route: 048

REACTIONS (2)
  - UPPER LIMB FRACTURE [None]
  - DEPRESSION [None]
